FAERS Safety Report 20062716 (Version 1)
Quarter: 2021Q4

REPORT INFORMATION
  Report Type: Spontaneous
  Country: CN (occurrence: CN)
  Receive Date: 20211112
  Receipt Date: 20211112
  Transmission Date: 20220304
  Serious: Yes (Other)
  Sender: FDA-Public Use
  Company Number: CN-DSJP-DSJ-2021-137167AA

PATIENT
  Age: 73 Year
  Sex: Male
  Weight: 69 kg

DRUGS (2)
  1. HYDROCHLOROTHIAZIDE\OLMESARTAN MEDOXOMIL [Suspect]
     Active Substance: HYDROCHLOROTHIAZIDE\OLMESARTAN MEDOXOMIL
     Indication: Symptomatic treatment
     Dosage: 20 MG, DAILY
     Route: 048
     Dates: start: 20211003, end: 20211005
  2. ADALAT [Concomitant]
     Active Substance: NIFEDIPINE
     Indication: Symptomatic treatment
     Dosage: 30 MG, QD
     Route: 048
     Dates: start: 20211003, end: 20211005

REACTIONS (5)
  - Hypotension [Recovering/Resolving]
  - Hypoglycaemic unconsciousness [Recovered/Resolved]
  - Cold sweat [Recovering/Resolving]
  - Pulse abnormal [Recovering/Resolving]
  - Asthenia [Recovering/Resolving]

NARRATIVE: CASE EVENT DATE: 20211005
